FAERS Safety Report 8068506-4 (Version None)
Quarter: 2012Q1

REPORT INFORMATION
  Report Type: 
  Country: None (occurrence: None)
  Receive Date: 20120124
  Receipt Date: 20111104
  Transmission Date: 20120608
  Serious: No
  Sender: FDA-Public Use
  Company Number: US-AMGEN-USASP2011057740

PATIENT
  Age: 70 Year
  Sex: Female

DRUGS (2)
  1. PROLIA [Suspect]
     Indication: OSTEOPOROSIS POSTMENOPAUSAL
     Dosage: 60 MG, Q6MO
     Dates: start: 20110801
  2. SULINDAC [Concomitant]

REACTIONS (5)
  - MALAISE [None]
  - WEIGHT INCREASED [None]
  - NODULE [None]
  - IMMUNE SYSTEM DISORDER [None]
  - PULMONARY CONGESTION [None]
